FAERS Safety Report 24858186 (Version 1)
Quarter: 2025Q1

REPORT INFORMATION
  Report Type: Spontaneous
  Country: US (occurrence: US)
  Receive Date: 20250117
  Receipt Date: 20250117
  Transmission Date: 20250408
  Serious: No
  Sender: SANOFI AVENTIS
  Company Number: US-SA-2025SA014061

PATIENT
  Age: 13 Year
  Sex: Male

DRUGS (5)
  1. TZIELD [Suspect]
     Active Substance: TEPLIZUMAB-MZWV
     Indication: Diabetes prophylaxis
     Dates: start: 20250110, end: 20250110
  2. TZIELD [Suspect]
     Active Substance: TEPLIZUMAB-MZWV
     Dates: start: 20250111, end: 20250111
  3. TZIELD [Suspect]
     Active Substance: TEPLIZUMAB-MZWV
     Dates: start: 20250112, end: 20250112
  4. TZIELD [Suspect]
     Active Substance: TEPLIZUMAB-MZWV
     Dates: start: 20250113, end: 20250113
  5. IBUPROFEN [Concomitant]
     Active Substance: IBUPROFEN
     Indication: Premedication
     Dates: start: 20250110

REACTIONS (1)
  - Lymphocyte count abnormal [Unknown]

NARRATIVE: CASE EVENT DATE: 20250112
